FAERS Safety Report 24283483 (Version 4)
Quarter: 2024Q4

REPORT INFORMATION
  Report Type: Report from Study
  Country: US (occurrence: US)
  Receive Date: 20240904
  Receipt Date: 20241017
  Transmission Date: 20250115
  Serious: No
  Sender: SUNOVION
  Company Number: US-SUMITOMO PHARMA SWITZERLAND GMBH-2024SPA001114

PATIENT

DRUGS (3)
  1. ORGOVYX [Suspect]
     Active Substance: RELUGOLIX
     Indication: Prostate cancer
     Dosage: UNK (LOADING DOSE)
     Route: 048
  2. ORGOVYX [Suspect]
     Active Substance: RELUGOLIX
     Dosage: 120 MG, QD (MAINTAINANCE DOSE)
     Route: 048
     Dates: start: 20240819
  3. ELIQUIS [Concomitant]
     Active Substance: APIXABAN
     Indication: Anticoagulant therapy
     Route: 065

REACTIONS (13)
  - Dry mouth [Unknown]
  - Dysuria [Unknown]
  - Back disorder [Unknown]
  - Rotator cuff syndrome [Not Recovered/Not Resolved]
  - Thirst [Unknown]
  - Urine flow decreased [Unknown]
  - Urinary straining [Unknown]
  - Dizziness [Unknown]
  - Constipation [Unknown]
  - Hot flush [Not Recovered/Not Resolved]
  - Arthralgia [Unknown]
  - Hyperhidrosis [Unknown]
  - Fatigue [Unknown]
